FAERS Safety Report 19575840 (Version 1)
Quarter: 2021Q3

REPORT INFORMATION
  Report Type: Spontaneous
  Country: US (occurrence: US)
  Receive Date: 20210717
  Receipt Date: 20210717
  Transmission Date: 20211014
  Serious: Yes (Other)
  Sender: FDA-Public Use
  Company Number: None

PATIENT
  Sex: Female

DRUGS (1)
  1. NEUTROGENA BEACH DEFENSE SUNSCREEN [Suspect]
     Active Substance: AVOBENZONE\HOMOSALATE\OCTISALATE\OCTOCRYLENE
     Indication: PROPHYLAXIS AGAINST SOLAR RADIATION
     Dosage: ?          OTHER STRENGTH:SPF;?
     Route: 061
     Dates: start: 20210709, end: 20210717

REACTIONS (7)
  - Dizziness [None]
  - Recalled product administered [None]
  - Headache [None]
  - Rash [None]
  - Skin irritation [None]
  - Skin ulcer [None]
  - Skin burning sensation [None]

NARRATIVE: CASE EVENT DATE: 20210717
